FAERS Safety Report 15865448 (Version 3)
Quarter: 2019Q2

REPORT INFORMATION
  Report Type: Spontaneous
  Country: FR (occurrence: FR)
  Receive Date: 20190125
  Receipt Date: 20190411
  Transmission Date: 20190711
  Serious: Yes (Other)
  Sender: FDA-Public Use
  Company Number: FR-009507513-1901FRA007333

PATIENT
  Sex: Male
  Weight: 110 kg

DRUGS (5)
  1. METFORMIN [Concomitant]
     Active Substance: METFORMIN HYDROCHLORIDE
     Indication: TYPE 2 DIABETES MELLITUS
     Dosage: 500 MG TID
     Dates: start: 20141230
  2. ATENOLOL. [Concomitant]
     Active Substance: ATENOLOL
     Indication: ISCHAEMIC CARDIOMYOPATHY
     Dosage: 50 MG QAM
     Dates: start: 20141230
  3. KARDEGIC [Concomitant]
     Active Substance: ASPIRIN DL-LYSINE
     Indication: ISCHAEMIC CARDIOMYOPATHY
     Dosage: 75 MG AT NOON
     Dates: start: 20141230
  4. PANTOPRAZOLE [Concomitant]
     Active Substance: PANTOPRAZOLE
     Indication: GASTROOESOPHAGEAL REFLUX DISEASE
     Dosage: 20 MG QPM
     Dates: start: 20141230
  5. LIPTRUZET [Suspect]
     Active Substance: ATORVASTATIN CALCIUM\EZETIMIBE
     Indication: HYPERCHOLESTEROLAEMIA
     Dosage: 1 TABLET, QPM
     Route: 048
     Dates: start: 20171219, end: 20181031

REACTIONS (6)
  - Gamma-glutamyltransferase increased [Unknown]
  - Malaise [Unknown]
  - Hepatocellular injury [Unknown]
  - Tendonitis [Unknown]
  - Pain [Unknown]
  - Transaminases increased [Unknown]
